FAERS Safety Report 6608437-7 (Version None)
Quarter: 2010Q1

REPORT INFORMATION
  Report Type: 
  Country: None (occurrence: None)
  Receive Date: 20100301
  Receipt Date: 20100222
  Transmission Date: 20100710
  Serious: Yes (Hospitalization)
  Sender: FDA-Public Use
  Company Number: TR-ELI_LILLY_AND_COMPANY-TR201002006105

PATIENT
  Age: 52 Year
  Sex: Female

DRUGS (4)
  1. HUMALOG MIX 50/50 [Suspect]
     Indication: DIABETES MELLITUS
     Dosage: 30 IU, EACH MORNING
     Route: 058
     Dates: start: 20100101
  2. HUMALOG MIX 50/50 [Suspect]
     Dosage: 30 IU, EACH EVENING
     Route: 058
     Dates: start: 20100101
  3. GLIFOR [Concomitant]
     Indication: DIABETES MELLITUS
     Dosage: 850 MG, 3/D
     Route: 048
  4. DELIX [Concomitant]
     Dosage: 5 MG, 3/D
     Route: 048

REACTIONS (3)
  - BLOOD GLUCOSE DECREASED [None]
  - BLOOD GLUCOSE INCREASED [None]
  - DIABETIC EYE DISEASE [None]
